FAERS Safety Report 7478029-9 (Version None)
Quarter: 2011Q2

REPORT INFORMATION
  Report Type: 
  Country: None (occurrence: None)
  Receive Date: 20110513
  Receipt Date: 20110502
  Transmission Date: 20111010
  Serious: Yes (Hospitalization)
  Sender: FDA-Public Use
  Company Number: US-EISAI INC-E7389-01060-CLI-US

PATIENT
  Sex: Male
  Weight: 73 kg

DRUGS (12)
  1. FUROSEMIDE [Concomitant]
     Route: 065
  2. PROCHLORPERAZINE TAB [Concomitant]
     Route: 065
  3. FERREX [Concomitant]
     Route: 048
     Dates: start: 20100415
  4. MELATONIN [Concomitant]
     Route: 048
     Dates: start: 20100916
  5. M.V.I. [Concomitant]
     Route: 065
  6. MIRALAX [Concomitant]
     Route: 048
     Dates: start: 20100916
  7. COLACE [Concomitant]
     Route: 048
     Dates: start: 20100427
  8. ZOMETA [Concomitant]
     Route: 065
  9. TARCEVA [Suspect]
     Route: 048
     Dates: start: 20101112
  10. OXYCODONE HCL [Concomitant]
     Route: 048
  11. EPIRUBICIN HYDROCHLORIDE [Suspect]
     Indication: NON-SMALL CELL LUNG CANCER
     Route: 041
     Dates: start: 20101111
  12. MEGACE [Concomitant]
     Route: 048
     Dates: start: 20101012

REACTIONS (2)
  - SEPSIS [None]
  - MUCOSAL INFLAMMATION [None]
